FAERS Safety Report 7324881-7 (Version None)
Quarter: 2011Q1

REPORT INFORMATION
  Report Type: 
  Country: None (occurrence: None)
  Receive Date: 20110301
  Receipt Date: 20110224
  Transmission Date: 20110831
  Serious: Yes (Death, Other)
  Sender: FDA-Public Use
  Company Number: DE-GENZYME-THYM-1002327

PATIENT
  Age: 2 Year
  Sex: Female

DRUGS (3)
  1. THIOTEPA [Concomitant]
     Indication: BONE MARROW CONDITIONING REGIMEN
     Route: 065
  2. THYMOGLOBULIN [Suspect]
     Indication: BONE MARROW CONDITIONING REGIMEN
     Route: 042
  3. FLUDARA [Suspect]
     Indication: BONE MARROW CONDITIONING REGIMEN
     Dosage: 40 MG/M2, UNK
     Route: 065

REACTIONS (4)
  - BRONCHOPULMONARY ASPERGILLOSIS [None]
  - PARVOVIRUS INFECTION [None]
  - RHINOVIRUS INFECTION [None]
  - GRANULOCYTOPENIA [None]
